FAERS Safety Report 7675385-3 (Version None)
Quarter: 2011Q3

REPORT INFORMATION
  Report Type: 
  Country: None (occurrence: None)
  Receive Date: 20110810
  Receipt Date: 20110808
  Transmission Date: 20111222
  Serious: Yes (Death, Other)
  Sender: FDA-Public Use
  Company Number: VE-PFIZER INC-2011154806

PATIENT
  Age: 82 Year
  Sex: Female

DRUGS (1)
  1. LIPITOR [Suspect]
     Indication: INFARCTION
     Dosage: UNKOWN DOSE, DAILY
     Route: 048
     Dates: start: 20080101

REACTIONS (2)
  - RESPIRATORY ARREST [None]
  - THROAT CANCER [None]
